FAERS Safety Report 7209008-4 (Version None)
Quarter: 2011Q1

REPORT INFORMATION
  Report Type: 
  Country: None (occurrence: None)
  Receive Date: 20110104
  Receipt Date: 20101228
  Transmission Date: 20110831
  Serious: Yes (Other)
  Sender: FDA-Public Use
  Company Number: US-PFIZER INC-2010180985

PATIENT
  Sex: Male
  Weight: 86.182 kg

DRUGS (5)
  1. PROSCAR [Concomitant]
     Dosage: UNK
  2. CADUET [Suspect]
     Indication: BLOOD CHOLESTEROL INCREASED
  3. CAFFEINE [Suspect]
     Dosage: UNK
  4. CADUET [Suspect]
     Indication: HYPERTENSION
     Dosage: AMLODIPINE 10MG, ATORVASTATIN 10MG, DAILY
  5. SYNTHROID [Concomitant]
     Dosage: UNK

REACTIONS (3)
  - CHOLELITHIASIS [None]
  - ATRIAL FIBRILLATION [None]
  - NEPHROLITHIASIS [None]
